FAERS Safety Report 25324691 (Version 1)
Quarter: 2025Q2

REPORT INFORMATION
  Report Type: Report from Study
  Country: US (occurrence: US)
  Receive Date: 20250516
  Receipt Date: 20250516
  Transmission Date: 20250716
  Serious: Yes (Death)
  Sender: RECORDATI
  Company Number: US-RECORDATI RARE DISEASE INC.-2025003292

PATIENT
  Sex: Male
  Weight: 133.79 kg

DRUGS (22)
  1. ISTURISA [Suspect]
     Active Substance: OSILODROSTAT PHOSPHATE
     Indication: Cushing^s syndrome
     Dosage: 2 MG, BID
     Route: 048
     Dates: end: 20250422
  2. ISTURISA [Suspect]
     Active Substance: OSILODROSTAT PHOSPHATE
     Indication: Adrenal gland cancer
     Dosage: 2 MG, BID
     Route: 048
     Dates: start: 202504, end: 20250425
  3. ISTURISA [Suspect]
     Active Substance: OSILODROSTAT PHOSPHATE
     Dosage: 2 MG, BID
     Route: 048
     Dates: start: 2025, end: 2025
  4. ATORVASTATIN CALCIUM [Concomitant]
     Active Substance: ATORVASTATIN CALCIUM
     Indication: Product used for unknown indication
     Dosage: 40 MG, QD (BED TIME) (ORAL TABLET)
     Route: 048
     Dates: start: 20230416
  5. BUMETANIDE [Concomitant]
     Active Substance: BUMETANIDE
     Indication: Product used for unknown indication
     Dosage: 2 MG, BID (ORAL TABLET)
     Route: 048
     Dates: start: 20230416
  6. GABAPENTIN [Concomitant]
     Active Substance: GABAPENTIN
     Indication: Product used for unknown indication
     Dosage: 300 MG, QD (BEDTIME) (ORAL CAPSULE)
     Route: 048
     Dates: start: 20230416
  7. JARDIANCE [Concomitant]
     Active Substance: EMPAGLIFLOZIN
     Indication: Product used for unknown indication
     Dosage: 10 MG, QD (ORAL TABLET)
     Route: 048
     Dates: start: 20230416
  8. LISINOPRIL [Concomitant]
     Active Substance: LISINOPRIL
     Indication: Product used for unknown indication
     Dosage: 40 MG, QD (ORAL TABLET)
     Route: 048
     Dates: start: 20230416
  9. METFORMIN HYDROCHLORIDE [Concomitant]
     Active Substance: METFORMIN HYDROCHLORIDE
     Indication: Product used for unknown indication
     Dosage: 500 MILLIGRAM, BID (ORAL TABLET)
     Route: 048
     Dates: start: 20230416
  10. METOPROLOL SUCCINATE [Concomitant]
     Active Substance: METOPROLOL SUCCINATE
     Indication: Product used for unknown indication
     Dosage: 50 MG, QD (EXTENDED RELEASE ORAL TABLET)
     Route: 048
     Dates: start: 20230416
  11. MONTELUKAST SODIUM [Concomitant]
     Active Substance: MONTELUKAST SODIUM
     Indication: Product used for unknown indication
     Dosage: 10 MG, QD (BEDTIME)
     Route: 048
     Dates: start: 20230416
  12. POTASSIUM CHLORIDE [Concomitant]
     Active Substance: POTASSIUM CHLORIDE
     Indication: Product used for unknown indication
     Dosage: 20 MILLIEQUIVALENT, BID (CRYS EXTENDED RELEASE ORAL TABLET )
     Route: 048
     Dates: start: 20230416
  13. PREDNISONE [Concomitant]
     Active Substance: PREDNISONE
     Indication: Product used for unknown indication
     Dosage: 10 MG, QD (ORAL TABLET)
     Route: 048
     Dates: start: 20230416
  14. ALFUZOSIN HYDROCHLORIDE [Concomitant]
     Active Substance: ALFUZOSIN HYDROCHLORIDE
     Indication: Product used for unknown indication
     Dosage: 10 MG, QD (MORNING) (EXTENDED RELEASE ORAL TABLET)
     Route: 048
     Dates: start: 20240416
  15. LANTUS SOLOSTAR [Concomitant]
     Active Substance: INSULIN GLARGINE
     Indication: Product used for unknown indication
     Dosage: 56 UNITS, QD (SUBCUTANEOUS SOLUTION)
     Route: 058
     Dates: start: 20240416
  16. MOUNJARO [Concomitant]
     Active Substance: TIRZEPATIDE
     Indication: Product used for unknown indication
     Dosage: 7.5 MILLIGRAMS/0.5 MILLILITERS (MG/0.5ML), QW (SUBCUTANEOUS SOLUTION)
     Route: 058
     Dates: start: 20240416
  17. OMEPRAZOLE [Concomitant]
     Active Substance: OMEPRAZOLE
     Indication: Product used for unknown indication
     Dosage: 20 MG, BID (ORAL TABLET)
     Route: 048
     Dates: start: 20240416
  18. ELIQUIS [Concomitant]
     Active Substance: APIXABAN
     Indication: Product used for unknown indication
     Dosage: 5 MG, BID (ORAL TABLET)
     Route: 048
     Dates: start: 20250216
  19. ONDANSETRON HYDROCHLORIDE [Concomitant]
     Active Substance: ONDANSETRON HYDROCHLORIDE
     Indication: Product used for unknown indication
     Dosage: 8 MG, Q8H (ORAL TABLET)
     Route: 048
     Dates: start: 20250216
  20. SPIRONOLACTONE [Concomitant]
     Active Substance: SPIRONOLACTONE
     Indication: Product used for unknown indication
     Dosage: 25 MG, QD (ORAL TABLET)
     Route: 048
     Dates: start: 20250216
  21. OLANZAPINE [Concomitant]
     Active Substance: OLANZAPINE
     Indication: Product used for unknown indication
     Dosage: 5 MG, QD (BEDTIME)
     Route: 048
     Dates: start: 20250316
  22. PROCHLORPERAZINE MALEATE [Concomitant]
     Active Substance: PROCHLORPERAZINE MALEATE
     Indication: Product used for unknown indication
     Dosage: 10 MG, Q6H (EVERY 6 HOURS AS NEEDED)
     Route: 048
     Dates: start: 20250316

REACTIONS (1)
  - Neoplasm malignant [Fatal]
